FAERS Safety Report 5289383-0 (Version None)
Quarter: 2007Q2

REPORT INFORMATION
  Report Type: 
  Country: None (occurrence: None)
  Receive Date: 20070406
  Receipt Date: 20070405
  Transmission Date: 20071010
  Serious: Yes (Other)
  Sender: FDA-Public Use
  Company Number: TR-BRISTOL-MYERS SQUIBB COMPANY-13736301

PATIENT
  Age: 58 Year
  Sex: Male

DRUGS (2)
  1. TRIAMCINOLONE ACETONIDE [Suspect]
     Indication: DIABETIC RETINOPATHY
     Dosage: 4 MG/0.1 ML ADMINISTERED VIA INTRAVITREAL INJECTION
  2. TRIAMCINOLONE ACETONIDE [Suspect]
     Indication: RETINAL OEDEMA
     Dosage: 4 MG/0.1 ML ADMINISTERED VIA INTRAVITREAL INJECTION

REACTIONS (2)
  - PHOTOPSIA [None]
  - RETINAL TEAR [None]
